FAERS Safety Report 8079127-1 (Version None)
Quarter: 2012Q1

REPORT INFORMATION
  Report Type: 
  Country: None (occurrence: None)
  Receive Date: 20120128
  Receipt Date: 20110818
  Transmission Date: 20120608
  Serious: No
  Sender: FDA-Public Use
  Company Number: US-ABBOTT-11P-163-0847915-00

PATIENT
  Age: 47 Year
  Sex: Female

DRUGS (4)
  1. VITAMIN D [Concomitant]
     Indication: VITAMIN D DEFICIENCY
     Dosage: DAILY
  2. HUMIRA [Suspect]
     Indication: RHEUMATOID ARTHRITIS
     Dates: start: 20090101
  3. TRAMADOL HCL [Concomitant]
     Indication: BONE PAIN
     Dosage: DAILY, AS REQUIRED
  4. MOTRIN [Concomitant]
     Indication: ARTHRALGIA

REACTIONS (4)
  - MIGRAINE [None]
  - ARTHRALGIA [None]
  - RHEUMATOID ARTHRITIS [None]
  - MUSCULOSKELETAL PAIN [None]
